FAERS Safety Report 18967268 (Version 6)
Quarter: 2021Q2

REPORT INFORMATION
  Report Type: Spontaneous
  Country: BR (occurrence: BR)
  Receive Date: 20210303
  Receipt Date: 20210525
  Transmission Date: 20210717
  Serious: Yes (Hospitalization, Other)
  Sender: FDA-Public Use
  Company Number: BR-CELLTRION INC.-2021BR002595

PATIENT

DRUGS (4)
  1. REMSIMA [Suspect]
     Active Substance: INFLIXIMAB
     Indication: COLITIS ULCERATIVE
     Dosage: 4 BOTTLES OF 100 MG INFUSION EVERY 8 WEEKS/1 INFUSION EVERY 8 WEEKS/4 AMPOULES PER INFUSION
     Route: 042
  2. AZATHIOPRINE. [Concomitant]
     Active Substance: AZATHIOPRINE
     Dosage: 50 MG, 2 TABLETS IN THE MORNING
     Dates: start: 2020
  3. REMSIMA [Suspect]
     Active Substance: INFLIXIMAB
     Dosage: EVERY 8 WEEKS/4 AMPOULES PER INFUSION
     Route: 042
     Dates: start: 20210224, end: 20210224
  4. AZATHIOPRINE. [Concomitant]
     Active Substance: AZATHIOPRINE
     Indication: COLITIS ULCERATIVE
     Dosage: 4 TABLETS IN THE MORNING

REACTIONS (11)
  - Dysphonia [Unknown]
  - Tumour excision [Unknown]
  - Papilloma viral infection [Not Recovered/Not Resolved]
  - Nodule [Unknown]
  - Skin depigmentation [Not Recovered/Not Resolved]
  - Throat cancer [Unknown]
  - Intentional dose omission [Unknown]
  - Product substitution [Unknown]
  - Dry skin [Recovered/Resolved]
  - Gastrointestinal inflammation [Recovering/Resolving]
  - Macule [Not Recovered/Not Resolved]

NARRATIVE: CASE EVENT DATE: 2020
